FAERS Safety Report 9320502 (Version 1)
Quarter: 2013Q2

REPORT INFORMATION
  Report Type: Spontaneous
  Country: IT (occurrence: IT)
  Receive Date: 20130530
  Receipt Date: 20130530
  Transmission Date: 20140414
  Serious: Yes (Hospitalization)
  Sender: FDA-Public Use
  Company Number: IT-MYLANLABS-2013S1011094

PATIENT
  Age: 90 Year
  Sex: Female

DRUGS (7)
  1. ATENOLOLO [Concomitant]
     Indication: HYPERTENSION
     Dates: start: 20110101, end: 20130406
  2. LORAZEPAM [Suspect]
     Indication: INSOMNIA
     Route: 048
     Dates: start: 20130405, end: 20130405
  3. OPTALIDON /00109201/ [Suspect]
     Indication: HEADACHE
     Route: 048
     Dates: start: 20130405, end: 20130405
  4. LANOXIN [Concomitant]
     Indication: ATRIAL FIBRILLATION
     Dosage: 0.125 MG TABLETS
     Dates: start: 20080101, end: 20130406
  5. ASCRIPTIN [Concomitant]
     Indication: ATRIAL FIBRILLATION
     Dosage: TABLETS
  6. IPERTEN [Concomitant]
     Indication: HYPERTENSION
     Dosage: 20 MG TABLETS
     Dates: start: 20080101, end: 20130406
  7. LASIX [Concomitant]
     Indication: HYPERTENSION
     Dosage: 25 MG TABLET
     Dates: start: 20080101, end: 20130406

REACTIONS (4)
  - Asthenia [Recovering/Resolving]
  - Dysphonia [Recovering/Resolving]
  - Overdose [Recovering/Resolving]
  - Dysstasia [Recovering/Resolving]
